FAERS Safety Report 5675394-X (Version None)
Quarter: 2008Q2

REPORT INFORMATION
  Report Type: 
  Country: None (occurrence: None)
  Receive Date: 20080307
  Receipt Date: 20070213
  Transmission Date: 20081010
  Serious: Yes (Other)
  Sender: FDA-Public Use
  Company Number: US200702002938

PATIENT
  Age: 73 Year
  Sex: Male

DRUGS (1)
  1. GEMZAR [Suspect]
     Dosage: 2000 MG, INTRAVENOUS
     Route: 042
     Dates: start: 20060823, end: 20070201

REACTIONS (1)
  - RECALL PHENOMENON [None]
